FAERS Safety Report 23152295 (Version 2)
Quarter: 2023Q4

REPORT INFORMATION
  Report Type: Report from Study
  Country: CA (occurrence: None)
  Receive Date: 20231107
  Receipt Date: 20231108
  Transmission Date: 20240110
  Serious: Yes (Other)
  Sender: FDA-Public Use
  Company Number: 2023A250535

PATIENT
  Sex: Female

DRUGS (1)
  1. TAGRISSO [Suspect]
     Active Substance: OSIMERTINIB
     Indication: Non-small cell lung cancer metastatic
     Route: 048
     Dates: start: 20200622, end: 202310

REACTIONS (3)
  - Malignant neoplasm progression [Unknown]
  - Metastases to liver [Unknown]
  - Drug ineffective [Unknown]
